FAERS Safety Report 12786705 (Version 2)
Quarter: 2016Q4

REPORT INFORMATION
  Report Type: Spontaneous
  Country: US (occurrence: US)
  Receive Date: 20160927
  Receipt Date: 20161006
  Transmission Date: 20170207
  Serious: No
  Sender: FDA-Public Use
  Company Number: US-009507513-1609USA006947

PATIENT
  Sex: Female

DRUGS (1)
  1. NEXPLANON [Suspect]
     Active Substance: ETONOGESTREL
     Dosage: 1 DF, UNK
     Route: 059
     Dates: end: 2016

REACTIONS (3)
  - Implant site swelling [Recovered/Resolved]
  - Implant site hypersensitivity [Recovered/Resolved]
  - Complication associated with device [Recovered/Resolved]
